FAERS Safety Report 22246369 (Version 2)
Quarter: 2023Q2

REPORT INFORMATION
  Report Type: Spontaneous
  Country: AR (occurrence: AR)
  Receive Date: 20230424
  Receipt Date: 20230502
  Transmission Date: 20230722
  Serious: Yes (Death, Life-Threatening, Hospitalization, Other)
  Sender: FDA-Public Use
  Company Number: AR-PFIZER INC-PV202300073449

PATIENT
  Age: 33 Year
  Sex: Female

DRUGS (1)
  1. TALZENNA [Suspect]
     Active Substance: TALAZOPARIB TOSYLATE
     Dosage: EVERY OTHER DAY

REACTIONS (4)
  - Death [Fatal]
  - Malaise [Unknown]
  - Platelet count decreased [Unknown]
  - Off label use [Unknown]
